FAERS Safety Report 23253666 (Version 1)
Quarter: 2023Q4

REPORT INFORMATION
  Report Type: Spontaneous
  Country: DE (occurrence: DE)
  Receive Date: 20231202
  Receipt Date: 20231202
  Transmission Date: 20240109
  Serious: Yes (Life-Threatening, Hospitalization, Other)
  Sender: FDA-Public Use
  Company Number: DE-ACTAVIS-2009A-02189

PATIENT
  Age: 85 Year
  Sex: Female
  Weight: 70 kg

DRUGS (11)
  1. CARVEDILOL [Suspect]
     Active Substance: CARVEDILOL
     Indication: Product used for unknown indication
     Dosage: 6.25MG INTERVAL UNKNOWN
     Route: 048
     Dates: start: 20081107, end: 20081214
  2. ENALAPRIL [Suspect]
     Active Substance: ENALAPRIL
     Indication: Product used for unknown indication
     Dosage: 2.5MG INTERVAL UNKNOWN
     Route: 048
     Dates: start: 20081107, end: 20081214
  3. LANTUS [Suspect]
     Active Substance: INSULIN GLARGINE
     Indication: Product used for unknown indication
     Dosage: 16IU INTERVAL UNKNOWN
     Route: 058
     Dates: start: 2000
  4. INSULIN ASPART [Suspect]
     Active Substance: INSULIN ASPART
     Indication: Product used for unknown indication
     Dosage: 54IU INTERVAL UNKNOWN
     Route: 058
     Dates: start: 2000, end: 20081214
  5. REPAGLINIDE [Suspect]
     Active Substance: REPAGLINIDE
     Indication: Product used for unknown indication
     Dosage: 2MG INTERVAL UNKNOWN
     Route: 048
     Dates: start: 2000, end: 20081214
  6. ALLOPURINOL [Concomitant]
     Active Substance: ALLOPURINOL
     Indication: Product used for unknown indication
     Dosage: 100MG INTERVAL UNKNOWN
     Route: 048
     Dates: start: 20081107, end: 20090105
  7. DIGITOXIN [Concomitant]
     Active Substance: DIGITOXIN
     Indication: Product used for unknown indication
     Dosage: 0.07MG INTERVAL UNKNOWN
     Route: 048
     Dates: start: 1990
  8. LEVOTHYROXINE [Concomitant]
     Active Substance: LEVOTHYROXINE
     Indication: Product used for unknown indication
     Dosage: 125MCG INTERVAL UNKNOWN
     Route: 048
     Dates: start: 1990
  9. OMEPRAZOLE [Concomitant]
     Active Substance: OMEPRAZOLE
     Indication: Product used for unknown indication
     Dosage: 20MG INTERVAL UNKNOWN
     Route: 048
     Dates: start: 2006
  10. SPIRONOLACTONE [Concomitant]
     Active Substance: SPIRONOLACTONE
     Indication: Product used for unknown indication
     Dosage: 25MG INTERVAL UNKNOWN
     Route: 048
     Dates: start: 200811, end: 20081214
  11. TORSEMIDE [Concomitant]
     Active Substance: TORSEMIDE
     Indication: Product used for unknown indication
     Dosage: 40MG INTERVAL UNKNOWN
     Route: 048
     Dates: start: 2002

REACTIONS (2)
  - Hypoglycaemia [Recovered/Resolved]
  - Drug interaction [Recovered/Resolved]

NARRATIVE: CASE EVENT DATE: 20081214
